FAERS Safety Report 5289235-6 (Version None)
Quarter: 2007Q1

REPORT INFORMATION
  Report Type: 
  Country: None (occurrence: None)
  Receive Date: 20070126
  Receipt Date: 20061102
  Transmission Date: 20070707
  Serious: Yes (Hospitalization)
  Sender: FDA-Public Use
  Company Number: 06P-163-0349032-00

PATIENT
  Age: 16 Year
  Sex: Female
  Weight: 54.4316 kg

DRUGS (3)
  1. OMNICEF [Suspect]
     Indication: BLEPHARITIS
     Dosage: 300 MG, 2 IN 1 D, PER ORAL
     Route: 048
     Dates: start: 20060712, end: 20060719
  2. OMNICEF [Suspect]
     Indication: HORDEOLUM
     Dosage: 300 MG, 2 IN 1 D, PER ORAL
     Route: 048
     Dates: start: 20060712, end: 20060719
  3. OFLOXACIN [Concomitant]

REACTIONS (4)
  - BACK PAIN [None]
  - CLOSTRIDIUM DIFFICILE COLITIS [None]
  - VOMITING [None]
  - WEIGHT DECREASED [None]
